FAERS Safety Report 10143282 (Version 2)
Quarter: 2014Q2

REPORT INFORMATION
  Report Type: Spontaneous
  Country: CN (occurrence: CN)
  Receive Date: 20140430
  Receipt Date: 20140522
  Transmission Date: 20141212
  Serious: Yes (Other)
  Sender: FDA-Public Use
  Company Number: CN-ABBVIE-14K-035-1231648-00

PATIENT
  Age: 3 Year
  Sex: Female

DRUGS (4)
  1. DEPAKINE [Suspect]
     Indication: EPILEPSY
     Route: 048
     Dates: start: 201308
  2. DEPAKINE [Suspect]
     Route: 048
  3. DEPAKINE [Suspect]
     Route: 048
     Dates: end: 201403
  4. DEPAKINE [Suspect]
     Route: 048
     Dates: start: 20140419

REACTIONS (10)
  - Varicella [Recovered/Resolved]
  - Cognitive disorder [Recovering/Resolving]
  - Speech disorder [Recovering/Resolving]
  - Viral infection [Recovered/Resolved]
  - Inappropriate schedule of drug administration [Unknown]
  - Pneumonia [Recovered/Resolved]
  - Epilepsy [Recovered/Resolved]
  - Pyrexia [Unknown]
  - Pruritus generalised [Not Recovered/Not Resolved]
  - Drug ineffective [Unknown]
